FAERS Safety Report 8812222 (Version 1)
Quarter: 2012Q4

REPORT INFORMATION
  Report Type: 
  Country: US (occurrence: US)
  Receive Date: 20120927
  Receipt Date: 20120927
  Transmission Date: 20130627
  Serious: Yes (Death, Other)
  Sender: FDA-Public Use
  Company Number: US-ROCHE-1124730

PATIENT
  Sex: Female

DRUGS (2)
  1. AVASTIN [Suspect]
     Indication: BREAST CANCER FEMALE
     Route: 065
     Dates: start: 20070430, end: 200708
  2. XELODA [Suspect]
     Indication: BREAST CANCER FEMALE
     Route: 065
     Dates: start: 20070430, end: 200705

REACTIONS (14)
  - Death [Fatal]
  - Impaired healing [Unknown]
  - Neuropathy peripheral [Unknown]
  - Haemorrhage [Unknown]
  - Dyspnoea [Unknown]
  - Pain [Unknown]
  - Fatigue [Unknown]
  - Asthenia [Unknown]
  - Palmar-plantar erythrodysaesthesia syndrome [Unknown]
  - Nausea [Unknown]
  - Vomiting [Unknown]
  - Anaemia [Unknown]
  - Haemorrhoids [Unknown]
  - Back pain [Unknown]
